FAERS Safety Report 9840425 (Version 2)
Quarter: 2014Q1

REPORT INFORMATION
  Report Type: Report from Study
  Country: US (occurrence: US)
  Receive Date: 20140124
  Receipt Date: 20140310
  Transmission Date: 20141002
  Serious: Yes (Hospitalization)
  Sender: FDA-Public Use
  Company Number: US-SA-2014SA009037

PATIENT
  Age: 33 Year
  Sex: Female
  Weight: 68.6 kg

DRUGS (3)
  1. APIDRA SOLOSTAR [Suspect]
     Indication: GESTATIONAL DIABETES
     Dosage: DOSE:10 UNIT(S)
     Route: 058
     Dates: start: 20131217, end: 20131226
  2. SOLOSTAR [Concomitant]
     Route: 051
     Dates: start: 20131217, end: 20131226
  3. HUMULIN [Concomitant]
     Indication: GESTATIONAL DIABETES
     Dosage: DOSE:10 UNIT(S)
     Route: 065
     Dates: start: 20131217, end: 20131226

REACTIONS (2)
  - Premature rupture of membranes [Recovered/Resolved]
  - Exposure during pregnancy [Unknown]
